FAERS Safety Report 24251244 (Version 1)
Quarter: 2024Q3

REPORT INFORMATION
  Report Type: Spontaneous
  Country: AU (occurrence: AU)
  Receive Date: 20240826
  Receipt Date: 20240826
  Transmission Date: 20241017
  Serious: Yes (Other)
  Sender: CHIESI
  Company Number: AU-CHIESI USA, INC.-2024CHF05354

PATIENT
  Age: 17 Day
  Sex: Female

DRUGS (1)
  1. ELAPEGADEMASE-LVLR [Suspect]
     Active Substance: ELAPEGADEMASE-LVLR
     Indication: Combined immunodeficiency
     Dosage: 0.4MG/KG AS BRIDGING THERAPY
     Route: 065

REACTIONS (1)
  - Omenn syndrome [Recovering/Resolving]
